FAERS Safety Report 6786182-5 (Version None)
Quarter: 2010Q2

REPORT INFORMATION
  Report Type: 
  Country: None (occurrence: None)
  Receive Date: 20100622
  Receipt Date: 20100622
  Transmission Date: 20101027
  Serious: No
  Sender: FDA-Public Use
  Company Number: None

PATIENT
  Age: 83 Year
  Sex: Female
  Weight: 77.5651 kg

DRUGS (2)
  1. DILAUDID [Suspect]
     Indication: BACK PAIN
     Dates: start: 20100509, end: 20100512
  2. DILAUDID [Suspect]
     Indication: PAIN
     Dates: start: 20100509, end: 20100512

REACTIONS (2)
  - HALLUCINATION [None]
  - NIGHTMARE [None]
